FAERS Safety Report 8438018-4 (Version None)
Quarter: 2012Q2

REPORT INFORMATION
  Report Type: 
  Country: None (occurrence: None)
  Receive Date: 20120614
  Receipt Date: 20120604
  Transmission Date: 20120825
  Serious: Yes (Death, Life-Threatening, Hospitalization, Disabling)
  Sender: FDA-Public Use
  Company Number: JP-BAYER-2012-045475

PATIENT
  Age: 74 Year
  Sex: Male
  Weight: 49 kg

DRUGS (13)
  1. TELMISARTAN [Concomitant]
     Dosage: DAILY DOSE 1 DF
     Route: 048
     Dates: end: 20110213
  2. CARBIDOPA AND LEVODOPA [Concomitant]
     Dosage: DAILY DOSE 100 MG
     Route: 048
     Dates: end: 20110213
  3. SELEGILINE HYDROCHLORIDE [Concomitant]
     Dosage: DAILY DOSE 5 MG
     Route: 048
     Dates: end: 20110213
  4. ZOLPIDEM [Concomitant]
     Dosage: DAILY DOSE 10 MG
     Route: 048
     Dates: end: 20110213
  5. URIEF [Concomitant]
     Dosage: DAILY DOSE 8 MG
     Route: 048
     Dates: end: 20110213
  6. DUTASTERIDE [Concomitant]
     Dosage: DAILY DOSE .5 MG
     Route: 048
     Dates: end: 20110213
  7. AKINETON [Concomitant]
     Dosage: DAILY DOSE 2 MG
     Route: 048
     Dates: end: 20110213
  8. MAOREAD [Concomitant]
     Dosage: DAILY DOSE 10 MG
     Route: 048
     Dates: end: 20110213
  9. SEDEKOPAN [Concomitant]
     Dosage: DAILY DOSE .5 MG
     Route: 048
     Dates: end: 20110213
  10. ASPIRIN [Suspect]
     Indication: VASCULAR PARKINSONISM
     Dosage: DAILY DOSE 100 MG
     Route: 048
     Dates: end: 20110213
  11. ALENDRONATE SODIUM [Suspect]
     Indication: SPINAL COMPRESSION FRACTURE
     Dosage: DAILY DOSE 35 MG
     Route: 048
     Dates: end: 20110213
  12. RABEPRAZOLE SODIUM [Concomitant]
     Dosage: DAILY DOSE 10 MG
     Route: 048
     Dates: end: 20110213
  13. LOCHOLEST [Concomitant]
     Dosage: DAILY DOSE 30 MG
     Route: 048
     Dates: end: 20110213

REACTIONS (3)
  - NECROTISING OESOPHAGITIS [None]
  - DUODENAL ULCER [None]
  - PNEUMONIA ASPIRATION [None]
